FAERS Safety Report 11179698 (Version 3)
Quarter: 2015Q3

REPORT INFORMATION
  Report Type: Spontaneous
  Country: US (occurrence: None)
  Receive Date: 20150609
  Receipt Date: 20150923
  Transmission Date: 20151125
  Serious: Yes (Death)
  Sender: FDA-Public Use
  Company Number: RAP-001034-2015

PATIENT
  Age: 25 Year
  Sex: Female
  Weight: 76.4 kg

DRUGS (1)
  1. PROCYSBI DELAYED-RELEASE [Suspect]
     Active Substance: CYSTEAMINE BITARTRATE
     Indication: CYSTINOSIS
     Route: 048
     Dates: start: 201308, end: 201310

REACTIONS (1)
  - Death [None]

NARRATIVE: CASE EVENT DATE: 20150519
